FAERS Safety Report 10860625 (Version 11)
Quarter: 2016Q1

REPORT INFORMATION
  Report Type: Report from Study
  Country: CA (occurrence: CA)
  Receive Date: 20150224
  Receipt Date: 20160108
  Transmission Date: 20160525
  Serious: Yes (Hospitalization, Other)
  Sender: FDA-Public Use
  Company Number: CA-ALEXION PHARMACEUTICALS INC-A201403459

PATIENT
  Age: 54 Year
  Sex: Male
  Weight: 86 kg

DRUGS (20)
  1. SOLIRIS [Suspect]
     Active Substance: ECULIZUMAB
     Dosage: 1200 MG, Q2W
     Route: 042
     Dates: start: 20140807, end: 20141123
  2. SOLIRIS [Suspect]
     Active Substance: ECULIZUMAB
     Dosage: 600 MG, SINGLE
     Route: 042
     Dates: start: 20141117, end: 20141117
  3. SOLIRIS [Suspect]
     Active Substance: ECULIZUMAB
     Dosage: 600 MG, SINGLE
     Route: 042
     Dates: start: 20141121, end: 20141121
  4. ADALAT [Concomitant]
     Active Substance: NIFEDIPINE
     Dosage: 120 MG, QD
     Route: 048
     Dates: start: 201411
  5. SOLU-MEDROL [Concomitant]
     Active Substance: METHYLPREDNISOLONE SODIUM SUCCINATE
     Indication: PRODUCT USED FOR UNKNOWN INDICATION
     Dosage: UNK
     Route: 065
     Dates: start: 20150606, end: 20150608
  6. LORAZEPAM. [Concomitant]
     Active Substance: LORAZEPAM
     Indication: PRODUCT USED FOR UNKNOWN INDICATION
     Dosage: 1 MG, PRN
     Route: 048
  7. ACYCLOVIR                          /00587301/ [Concomitant]
     Active Substance: ACYCLOVIR
     Indication: PROPHYLAXIS
     Dosage: UNK
     Route: 065
     Dates: start: 20150606
  8. RITUXIMAB [Concomitant]
     Active Substance: RITUXIMAB
     Indication: PRODUCT USED FOR UNKNOWN INDICATION
     Dosage: UNK, OVER 6 HOUS
     Route: 065
     Dates: start: 20150611
  9. SOLIRIS [Suspect]
     Active Substance: ECULIZUMAB
     Dosage: 1200 MG Q2W
     Route: 042
     Dates: start: 20150714
  10. PENICILLIN                         /00000901/ [Concomitant]
     Active Substance: PENICILLIN G
     Indication: PROPHYLAXIS
     Dosage: UNK
     Route: 065
     Dates: start: 20150606
  11. CRESTOR [Concomitant]
     Active Substance: ROSUVASTATIN CALCIUM
     Indication: BLOOD CHOLESTEROL ABNORMAL
     Dosage: UNK
     Route: 065
     Dates: start: 201510
  12. SOLIRIS [Suspect]
     Active Substance: ECULIZUMAB
     Dosage: 1200 MG, Q2W
     Route: 042
     Dates: start: 20150714
  13. FLU VAX [Concomitant]
     Indication: IMMUNISATION
     Dosage: UNK
     Route: 065
     Dates: start: 20151127, end: 20151127
  14. SOLIRIS [Suspect]
     Active Substance: ECULIZUMAB
     Dosage: 600 MG, SINGLE
     Route: 042
     Dates: start: 20141119, end: 20141119
  15. SOLIRIS [Suspect]
     Active Substance: ECULIZUMAB
     Dosage: 1200 MG Q2W
     Route: 042
     Dates: start: 20150714
  16. ADALAT [Concomitant]
     Active Substance: NIFEDIPINE
     Indication: HYPERTENSION
     Dosage: 30 MG, QD
     Route: 048
     Dates: start: 201303
  17. SOLIRIS [Suspect]
     Active Substance: ECULIZUMAB
     Indication: HAEMOLYTIC URAEMIC SYNDROME
     Dosage: 900 MG, QW
     Route: 042
     Dates: start: 20140711, end: 20140731
  18. SOLIRIS [Suspect]
     Active Substance: ECULIZUMAB
     Dosage: 1200 MG, EVERY 10 DAYS
     Route: 042
     Dates: start: 20141202, end: 20150601
  19. SOLIRIS [Suspect]
     Active Substance: ECULIZUMAB
     Dosage: 1200 MG Q2W
     Route: 042
     Dates: start: 20150714
  20. ADALAT [Concomitant]
     Active Substance: NIFEDIPINE
     Dosage: 60 MG, QD
     Route: 048
     Dates: start: 201412

REACTIONS (60)
  - Plasmapheresis [Not Recovered/Not Resolved]
  - Platelet count abnormal [Unknown]
  - Prostatic specific antigen increased [Not Recovered/Not Resolved]
  - Nausea [Recovered/Resolved]
  - Feeling abnormal [Recovered/Resolved]
  - Blood pressure increased [Recovered/Resolved]
  - Inappropriate schedule of drug administration [Recovered/Resolved]
  - Abdominal discomfort [Recovered/Resolved]
  - Haemoglobin abnormal [Unknown]
  - Plasmapheresis [Not Recovered/Not Resolved]
  - Plasmapheresis [Recovered/Resolved]
  - Platelet count abnormal [Not Recovered/Not Resolved]
  - Extra dose administered [Unknown]
  - Feeling abnormal [Not Recovered/Not Resolved]
  - Arthralgia [Not Recovered/Not Resolved]
  - Pyrexia [Not Recovered/Not Resolved]
  - Headache [Recovering/Resolving]
  - Headache [Recovered/Resolved]
  - Blood creatinine increased [Recovered/Resolved]
  - Blood creatinine increased [Not Recovered/Not Resolved]
  - Nausea [Recovered/Resolved]
  - Pyrexia [Recovered/Resolved]
  - Nausea [Recovered/Resolved]
  - Staring [Recovered/Resolved]
  - Joint stiffness [Recovered/Resolved]
  - Blood iron abnormal [Not Recovered/Not Resolved]
  - Hypertension [Recovered/Resolved]
  - Nausea [Not Recovered/Not Resolved]
  - Headache [Recovered/Resolved]
  - Arthralgia [Not Recovered/Not Resolved]
  - Condition aggravated [Not Recovered/Not Resolved]
  - Dizziness [Recovered/Resolved]
  - Feeling abnormal [Recovered/Resolved]
  - Fatigue [Not Recovered/Not Resolved]
  - Rash macular [Unknown]
  - Malaise [Recovered/Resolved]
  - Headache [Recovered/Resolved]
  - Fatigue [Recovered/Resolved]
  - Fatigue [Recovered/Resolved]
  - Headache [Recovered/Resolved]
  - Asthenia [Not Recovered/Not Resolved]
  - Nausea [Recovering/Resolving]
  - Arthralgia [Not Recovered/Not Resolved]
  - Inappropriate schedule of drug administration [Unknown]
  - Blood creatinine abnormal [Unknown]
  - Rash [Recovered/Resolved]
  - Hypertension [Recovered/Resolved]
  - Blood cholesterol increased [Recovering/Resolving]
  - Soft tissue mass [Recovered/Resolved]
  - Tension [Recovered/Resolved]
  - Headache [Not Recovered/Not Resolved]
  - Fatigue [Recovered/Resolved]
  - Fatigue [Recovered/Resolved]
  - Platelet count decreased [Not Recovered/Not Resolved]
  - Pyrexia [Not Recovered/Not Resolved]
  - Joint stiffness [Not Recovered/Not Resolved]
  - Feeling abnormal [Not Recovered/Not Resolved]
  - Nasal congestion [Recovered/Resolved]
  - Insomnia [Not Recovered/Not Resolved]
  - Fatigue [Recovered/Resolved]

NARRATIVE: CASE EVENT DATE: 201408
